FAERS Safety Report 24135257 (Version 2)
Quarter: 2024Q4

REPORT INFORMATION
  Report Type: Spontaneous
  Country: FR (occurrence: FR)
  Receive Date: 20240725
  Receipt Date: 20241206
  Transmission Date: 20250114
  Serious: No
  Sender: BECTON DICKINSON
  Company Number: FR-BECTON DICKINSON-FR-BD-24-000460

PATIENT

DRUGS (1)
  1. CHLORAPREP WITH TINT [Suspect]
     Active Substance: CHLORHEXIDINE GLUCONATE\ISOPROPYL ALCOHOL
     Indication: Product used for unknown indication
     Dosage: N/A
     Route: 065

REACTIONS (1)
  - Device material issue [Unknown]
